FAERS Safety Report 12113735 (Version 1)
Quarter: 2016Q1

REPORT INFORMATION
  Report Type: Spontaneous
  Country: US (occurrence: None)
  Receive Date: 20160224
  Receipt Date: 20160224
  Transmission Date: 20160526
  Serious: Yes (Hospitalization)
  Sender: FDA-Public Use
  Company Number: None

PATIENT
  Age: 23 Year
  Sex: Male
  Weight: 77 kg

DRUGS (1)
  1. LITHIUM CARBONATE 300MG [Suspect]
     Active Substance: LITHIUM CARBONATE
     Indication: SCHIZOAFFECTIVE DISORDER
     Dosage: 2 X 300MG BID PO
     Route: 048
     Dates: start: 20151030, end: 20160127

REACTIONS (5)
  - Drug level increased [None]
  - Tremor [None]
  - Fall [None]
  - Constipation [None]
  - Dehydration [None]

NARRATIVE: CASE EVENT DATE: 20160127
